FAERS Safety Report 20649469 (Version 1)
Quarter: 2022Q1

REPORT INFORMATION
  Report Type: Report from Study
  Country: CZ (occurrence: CZ)
  Receive Date: 20220329
  Receipt Date: 20220329
  Transmission Date: 20220423
  Serious: Yes (Congenital Anomaly, Other)
  Sender: FDA-Public Use
  Company Number: CZ-JNJFOC-20220344942

PATIENT

DRUGS (2)
  1. STELARA [Suspect]
     Active Substance: USTEKINUMAB
     Indication: Inflammatory bowel disease
     Route: 064
  2. AZATHIOPRINE [Concomitant]
     Active Substance: AZATHIOPRINE

REACTIONS (7)
  - Craniotabes [Unknown]
  - Currarino syndrome [Unknown]
  - Atrial septal defect [Unknown]
  - Limb deformity [Unknown]
  - Developmental hip dysplasia [Unknown]
  - Haemangioma [Unknown]
  - Foetal exposure during pregnancy [Recovered/Resolved]
